FAERS Safety Report 11126746 (Version 3)
Quarter: 2015Q3

REPORT INFORMATION
  Report Type: Report from Study
  Country: DE (occurrence: DE)
  Receive Date: 20150520
  Receipt Date: 20150701
  Transmission Date: 20151125
  Serious: Yes (Death)
  Sender: FDA-Public Use
  Company Number: PHHY2015DE058246

PATIENT
  Sex: Female
  Weight: 44 kg

DRUGS (13)
  1. GLYCOPYRRONIUM BROMIDE [Suspect]
     Active Substance: GLYCOPYRRONIUM
     Indication: CHRONIC OBSTRUCTIVE PULMONARY DISEASE
     Dosage: 44 UG, QD
     Route: 055
     Dates: start: 20130130, end: 20150216
  2. MIFLONIDE [Suspect]
     Active Substance: BUDESONIDE
     Indication: CHRONIC OBSTRUCTIVE PULMONARY DISEASE
     Dosage: 200 OT, BID (PUF)
     Route: 065
     Dates: start: 20150420
  3. PANTOPRAZOLE [Concomitant]
     Active Substance: PANTOPRAZOLE SODIUM
     Indication: PRODUCT USED FOR UNKNOWN INDICATION
     Dosage: 40 MG, UNK
     Route: 065
  4. QVA149 [Suspect]
     Active Substance: INVESTIGATIONAL PRODUCT
     Indication: CHRONIC OBSTRUCTIVE PULMONARY DISEASE
     Dosage: 1-0-1  (PUFF), BID
     Route: 055
     Dates: start: 20150420
  5. PREDNIHEXAL [Suspect]
     Active Substance: PREDNISOLONE ACETATE
     Indication: CHRONIC OBSTRUCTIVE PULMONARY DISEASE
     Dosage: (1 ?-0-0), 30 MG, DAILY,
     Route: 065
     Dates: start: 20150216
  6. MUCOCLEAR//SODIUM CHLORIDE [Concomitant]
     Indication: PRODUCT USED FOR UNKNOWN INDICATION
     Dosage: 3 ML, QD, AS NEEDED
     Route: 065
     Dates: start: 20140604
  7. KALINOR                            /01478101/ [Concomitant]
     Indication: PRODUCT USED FOR UNKNOWN INDICATION
     Route: 065
  8. ACC [Concomitant]
     Active Substance: ACETYLCYSTEINE
     Indication: PRODUCT USED FOR UNKNOWN INDICATION
     Dosage: 600 OT, BID
     Route: 065
     Dates: start: 20150420
  9. PREDNISOLONE. [Concomitant]
     Active Substance: PREDNISOLONE
     Indication: PRODUCT USED FOR UNKNOWN INDICATION
     Dosage: 25 MG, QD (REDUCTION OF 5 MG EVERY FIFTH DAY UNTIL 10 MG)
     Route: 065
     Dates: start: 20150420
  10. ATOSIL//PROMETHAZINE HYDROCHLORIDE [Concomitant]
     Indication: PRODUCT USED FOR UNKNOWN INDICATION
     Dosage: DROPS
     Route: 065
  11. EUPHYLONG [Concomitant]
     Active Substance: THEOPHYLLINE ANHYDROUS
     Indication: PRODUCT USED FOR UNKNOWN INDICATION
     Dosage: 250 OT, BID
     Route: 065
     Dates: start: 20150420
  12. CAD [Concomitant]
     Indication: PRODUCT USED FOR UNKNOWN INDICATION
     Route: 065
  13. SALBUHEXAL [Suspect]
     Active Substance: ALBUTEROL
     Indication: CHRONIC OBSTRUCTIVE PULMONARY DISEASE
     Dosage: 2 PUFFS, PRN
     Route: 065
     Dates: start: 20130130

REACTIONS (1)
  - Death [Fatal]
